FAERS Safety Report 11568847 (Version 1)
Quarter: 2015Q3

REPORT INFORMATION
  Report Type: Not Available
  Country: None (occurrence: US)
  Receive Date: 20150929
  Receipt Date: 20150929
  Transmission Date: 20151125
  Serious: No
  Sender: FDA-Public Use
  Company Number: US-MERZ NORTH AMERICA, INC.-15MRZ-00529

PATIENT
  Sex: Male
  Weight: 90.8 kg

DRUGS (1)
  1. XEOMIN [Suspect]
     Active Substance: INCOBOTULINUMTOXINA
     Indication: BLEPHAROSPASM
     Dosage: 100 UNITS INJECTED IN EYE
     Dates: start: 20150512, end: 20150512

REACTIONS (5)
  - Lip disorder [None]
  - Speech disorder [None]
  - Vision blurred [None]
  - Eyelid ptosis [None]
  - Drooling [None]
